FAERS Safety Report 6791747-0 (Version None)
Quarter: 2010Q2

REPORT INFORMATION
  Report Type: 
  Country: None (occurrence: None)
  Receive Date: 20100624
  Receipt Date: 20080715
  Transmission Date: 20101027
  Serious: No
  Sender: FDA-Public Use
  Company Number: US-PFIZER INC-2008059101

PATIENT
  Sex: Female
  Weight: 59.09 kg

DRUGS (4)
  1. GENOTROPIN [Suspect]
     Indication: GROWTH HORMONE DEFICIENCY
     Dates: start: 20080715
  2. MILNACIPRAN [Concomitant]
     Indication: DEPRESSION
  3. RIFAXIMIN [Concomitant]
  4. RELPAX [Concomitant]

REACTIONS (2)
  - INJECTION SITE PAIN [None]
  - INJECTION SITE PARAESTHESIA [None]
